FAERS Safety Report 6234661-1 (Version None)
Quarter: 2009Q2

REPORT INFORMATION
  Report Type: 
  Country: None (occurrence: None)
  Receive Date: 20090615
  Receipt Date: 20090306
  Transmission Date: 20091009
  Serious: No
  Sender: FDA-Public Use
  Company Number: DSA_33328_2009

PATIENT
  Sex: Female

DRUGS (2)
  1. XENAZINE [Suspect]
     Indication: TOURETTE'S DISORDER
     Dosage: (37.5 MG/DAY (DIVIDED DOSING))
     Dates: start: 20090207, end: 20090228
  2. SYNTHROID [Concomitant]

REACTIONS (4)
  - AGITATION [None]
  - FORMICATION [None]
  - MALAISE [None]
  - NERVOUSNESS [None]
